FAERS Safety Report 7391918-9 (Version None)
Quarter: 2011Q2

REPORT INFORMATION
  Report Type: 
  Country: None (occurrence: None)
  Receive Date: 20110404
  Receipt Date: 20110325
  Transmission Date: 20111010
  Serious: Yes (Death)
  Sender: FDA-Public Use
  Company Number: JP-SANOFI-AVENTIS-2011SA009424

PATIENT
  Age: 87 Year
  Sex: Male
  Weight: 58 kg

DRUGS (8)
  1. TAXOTERE [Suspect]
     Route: 041
     Dates: start: 20110105, end: 20110105
  2. TAXOTERE [Suspect]
     Indication: PROSTATE CANCER
     Route: 041
     Dates: start: 20101109, end: 20101109
  3. PARIET [Concomitant]
     Indication: PROSTATE CANCER
     Route: 048
     Dates: start: 20090821, end: 20110111
  4. ETIZOLAM [Concomitant]
     Indication: PROSTATE CANCER
     Route: 048
     Dates: start: 20090821, end: 20110111
  5. LEUPLIN [Concomitant]
     Indication: PROSTATE CANCER
     Dates: start: 20100827, end: 20110105
  6. DECADRON [Concomitant]
     Indication: PROSTATE CANCER
     Route: 048
     Dates: start: 20100804, end: 20110111
  7. TAXOTERE [Suspect]
     Route: 041
     Dates: start: 20101208, end: 20101208
  8. MOBIC [Concomitant]
     Indication: PROSTATE CANCER
     Route: 048
     Dates: start: 20090821, end: 20110111

REACTIONS (4)
  - DISEASE PROGRESSION [None]
  - MELAENA [None]
  - DYSPNOEA [None]
  - INTERSTITIAL LUNG DISEASE [None]
